FAERS Safety Report 12069594 (Version 1)
Quarter: 2016Q1

REPORT INFORMATION
  Report Type: Spontaneous
  Country: CA (occurrence: CA)
  Receive Date: 20160211
  Receipt Date: 20160211
  Transmission Date: 20160526
  Serious: Yes (Death)
  Sender: FDA-Public Use
  Company Number: CA-ROCHE-1709516

PATIENT

DRUGS (5)
  1. LAMBROLIZUMAB [Concomitant]
     Active Substance: LAMBROLIZUMAB
     Dosage: THERAPY DURATION: 123 DAYS
     Route: 065
  2. DABRAFENIB [Suspect]
     Active Substance: DABRAFENIB
     Indication: PRODUCT USED FOR UNKNOWN INDICATION
     Route: 048
  3. VEMURAFENIB [Suspect]
     Active Substance: VEMURAFENIB
     Indication: PRODUCT USED FOR UNKNOWN INDICATION
     Route: 065
  4. IVIG [Concomitant]
     Active Substance: HUMAN IMMUNOGLOBULIN G
     Route: 042
  5. DABRAFENIB [Suspect]
     Active Substance: DABRAFENIB
     Route: 065

REACTIONS (5)
  - Skin toxicity [Fatal]
  - Motor dysfunction [Fatal]
  - Demyelinating polyneuropathy [Fatal]
  - Guillain-Barre syndrome [Fatal]
  - Malignant melanoma [Fatal]
